FAERS Safety Report 10363919 (Version 2)
Quarter: 2014Q3

REPORT INFORMATION
  Report Type: Spontaneous
  Country: CH (occurrence: None)
  Receive Date: 20140801
  Receipt Date: 20140902
  Transmission Date: 20150326
  Serious: Yes (Disabling)
  Sender: FDA-Public Use
  Company Number: 20140437

PATIENT
  Age: 38 Year
  Sex: Female

DRUGS (2)
  1. YASMIN (ETHINYLESTRADIOL, DROSPIRENONE) [Concomitant]
  2. FERRIC CARBOXYMALTOSE [Suspect]
     Active Substance: FERRIC CARBOXYMALTOSE
     Indication: IRON DEFICIENCY ANAEMIA
     Route: 042
     Dates: start: 20140707, end: 20140707

REACTIONS (4)
  - Asthenia [None]
  - Haemoglobin decreased [None]
  - Pyrexia [None]
  - Vertigo [None]

NARRATIVE: CASE EVENT DATE: 20140709
